FAERS Safety Report 4976154-5 (Version None)
Quarter: 2006Q2

REPORT INFORMATION
  Report Type: 
  Country: None (occurrence: None)
  Receive Date: 20060410
  Receipt Date: 20060328
  Transmission Date: 20061013
  Serious: Yes (Disabling)
  Sender: FDA-Public Use
  Company Number: TCI2006A00206

PATIENT
  Age: 63 Year
  Sex: Male

DRUGS (3)
  1. TAKEPRON OD TABLETS 30 (LANSOPRAZOLE) [Suspect]
     Indication: GASTRIC ULCER
     Dosage: 30 MG (30 MG, 1 IN 1 D)
     Route: 048
     Dates: start: 20051129, end: 20051218
  2. RABEPRAZOLE SODIUM [Suspect]
     Indication: GASTRIC DISORDER
     Dosage: 20 MG (20 MG, 1 IN 1 D)
     Route: 048
     Dates: start: 20051219, end: 20051222
  3. RABEPRAZOLE SODIUM [Suspect]
     Indication: PROPHYLAXIS
     Dosage: 20 MG (20 MG, 1 IN 1 D)
     Route: 048
     Dates: start: 20051219, end: 20051222

REACTIONS (7)
  - FACIAL PALSY [None]
  - HAEMATURIA [None]
  - HAEMODIALYSIS [None]
  - MALAISE [None]
  - NEPHROSCLEROSIS [None]
  - RENAL FAILURE ACUTE [None]
  - TUBULOINTERSTITIAL NEPHRITIS [None]
